FAERS Safety Report 15472683 (Version 1)
Quarter: 2018Q4

REPORT INFORMATION
  Report Type: Spontaneous
  Country: GB (occurrence: GB)
  Receive Date: 20181008
  Receipt Date: 20181008
  Transmission Date: 20190205
  Serious: Yes (Other)
  Sender: FDA-Public Use
  Company Number: GB-BAXTER-2018BAX024748

PATIENT
  Age: 46 Year
  Sex: Female

DRUGS (1)
  1. CYCLOPHOSPHAMIDE INJECTION 1G [Suspect]
     Active Substance: CYCLOPHOSPHAMIDE
     Indication: CHEMOTHERAPY
     Route: 065
     Dates: start: 20180410

REACTIONS (2)
  - Unresponsive to stimuli [Unknown]
  - Syncope [Unknown]

NARRATIVE: CASE EVENT DATE: 20180410
